FAERS Safety Report 15957206 (Version 1)
Quarter: 2019Q1

REPORT INFORMATION
  Report Type: Report from Study
  Country: US (occurrence: US)
  Receive Date: 20190213
  Receipt Date: 20190213
  Transmission Date: 20190417
  Serious: Yes (Death)
  Sender: FDA-Public Use
  Company Number: US-PFIZER INC-2019060025

PATIENT
  Age: 52 Year
  Sex: Male

DRUGS (7)
  1. DOXORUBICIN HCL [Suspect]
     Active Substance: DOXORUBICIN HYDROCHLORIDE
     Indication: SMALL CELL LUNG CANCER
     Dosage: 50 MG/M2, CYCLIC (10 CYCLES)
     Route: 042
     Dates: start: 198006
  2. CYCLOPHOSPHAMIDE. [Suspect]
     Active Substance: CYCLOPHOSPHAMIDE
     Indication: SMALL CELL LUNG CANCER
     Dosage: 600 MG/M2, CYCLIC (7 CYCLES)
     Route: 042
     Dates: start: 198006
  3. METHOTREXATE SODIUM. [Suspect]
     Active Substance: METHOTREXATE SODIUM
     Indication: SMALL CELL LUNG CANCER
     Dosage: 30 MG/M2, CYCLIC (10 CYCLES)
     Dates: start: 198006
  4. ETOPOSIDE. [Suspect]
     Active Substance: ETOPOSIDE
     Indication: SMALL CELL LUNG CANCER
     Dosage: 200 MG/M2, CYCLIC (10 CYCLES)
     Route: 042
     Dates: start: 198006
  5. PROCARBAZINE [Suspect]
     Active Substance: PROCARBAZINE
     Indication: SMALL CELL LUNG CANCER
     Dosage: 100 MG/M2, CYCLIC (7 CYCLES)
     Route: 048
     Dates: start: 198006
  6. VINCRISTINE SULFATE. [Suspect]
     Active Substance: VINCRISTINE SULFATE
     Indication: SMALL CELL LUNG CANCER
     Dosage: 1.5 MG/M2, CYCLIC (7 CYCLES, MAXIMUM SINGLE DOSE, 2 MG)
     Route: 042
     Dates: start: 198006
  7. LOMUSTINE. [Suspect]
     Active Substance: LOMUSTINE
     Indication: SMALL CELL LUNG CANCER
     Dosage: 60 MG/M2, CYCLIC (7 CYCLES)
     Route: 048
     Dates: start: 198006

REACTIONS (2)
  - Second primary malignancy [Fatal]
  - Acute myeloid leukaemia [Fatal]
